FAERS Safety Report 10046816 (Version 1)
Quarter: 2014Q1

REPORT INFORMATION
  Report Type: Spontaneous
  Country: US (occurrence: None)
  Receive Date: 20140328
  Receipt Date: 20140328
  Transmission Date: 20141002
  Serious: Yes (Life-Threatening, Hospitalization, Disabling)
  Sender: FDA-Public Use
  Company Number: None

PATIENT
  Age: 23 Year
  Sex: 0
  Weight: 72.58 kg

DRUGS (1)
  1. LAMOTRIGINE [Suspect]
     Route: 048
     Dates: start: 20131218, end: 20140118

REACTIONS (1)
  - Toxic epidermal necrolysis [None]
